FAERS Safety Report 12261247 (Version 2)
Quarter: 2016Q2

REPORT INFORMATION
  Report Type: Spontaneous
  Country: IT (occurrence: IT)
  Receive Date: 20160412
  Receipt Date: 20160419
  Transmission Date: 20160815
  Serious: Yes (Other)
  Sender: FDA-Public Use
  Company Number: IT-ASTRAZENECA-2016SE35934

PATIENT
  Age: 78 Year
  Sex: Female

DRUGS (2)
  1. IRESSA [Suspect]
     Active Substance: GEFITINIB
     Route: 048
     Dates: start: 201509
  2. ZOMETA [Concomitant]
     Active Substance: ZOLEDRONIC ACID
     Dates: start: 201603

REACTIONS (6)
  - Dyspnoea [Unknown]
  - Malignant neoplasm progression [Unknown]
  - Asthenia [Unknown]
  - Malignant pleural effusion [Unknown]
  - Decreased appetite [Unknown]
  - Drug ineffective [Unknown]

NARRATIVE: CASE EVENT DATE: 201603
